FAERS Safety Report 10488171 (Version 2)
Quarter: 2014Q4

REPORT INFORMATION
  Report Type: Spontaneous
  Country: US (occurrence: US)
  Receive Date: 20141002
  Receipt Date: 20141002
  Transmission Date: 20150528
  Serious: No
  Sender: FDA-Public Use
  Company Number: US-TEVA-485436USA

PATIENT
  Sex: Male

DRUGS (1)
  1. CARBAMAZEPINE. [Suspect]
     Active Substance: CARBAMAZEPINE

REACTIONS (5)
  - Drug ineffective [Unknown]
  - Liver function test abnormal [Unknown]
  - Product quality issue [Unknown]
  - Pain [Unknown]
  - Therapeutic response changed [Unknown]
